FAERS Safety Report 6785943-6 (Version None)
Quarter: 2010Q2

REPORT INFORMATION
  Report Type: 
  Country: None (occurrence: None)
  Receive Date: 20100623
  Receipt Date: 20100615
  Transmission Date: 20101027
  Serious: Yes (Other)
  Sender: FDA-Public Use
  Company Number: US-SANOFI-AVENTIS-2010SA034596

PATIENT
  Age: 71 Year
  Sex: Female

DRUGS (7)
  1. MULTAQ [Suspect]
     Route: 065
     Dates: start: 20100514
  2. SIMVASTATIN [Suspect]
     Route: 048
  3. ASPIRIN [Concomitant]
  4. CARVEDILOL [Concomitant]
  5. AVAPRO [Concomitant]
  6. LEVOTHYROXINE SODIUM [Concomitant]
  7. FISH OIL [Concomitant]

REACTIONS (7)
  - ATRIAL FIBRILLATION [None]
  - BLOOD CREATINE PHOSPHOKINASE MB INCREASED [None]
  - CHEST DISCOMFORT [None]
  - DRUG INTERACTION [None]
  - MUSCULAR WEAKNESS [None]
  - MYALGIA [None]
  - RHABDOMYOLYSIS [None]
